FAERS Safety Report 6153938-1 (Version None)
Quarter: 2009Q2

REPORT INFORMATION
  Report Type: 
  Country: None (occurrence: None)
  Receive Date: 20090409
  Receipt Date: 20090409
  Transmission Date: 20091009
  Serious: Yes (Hospitalization)
  Sender: FDA-Public Use
  Company Number: None

PATIENT
  Sex: Female
  Weight: 54.5 kg

DRUGS (6)
  1. CISPLATIN [Suspect]
     Dosage: 68 MG
     Dates: end: 20090324
  2. COMPAZINE [Concomitant]
  3. COUMADIN [Concomitant]
  4. LOMOTIL [Concomitant]
  5. MOMETASONE INHALER [Concomitant]
  6. NEXIUM [Concomitant]

REACTIONS (7)
  - ANAEMIA [None]
  - BLOOD ELECTROLYTES ABNORMAL [None]
  - CHILLS [None]
  - DRUG EFFECT DECREASED [None]
  - ENTERITIS [None]
  - FLUID INTAKE REDUCED [None]
  - HYPOPHAGIA [None]
